FAERS Safety Report 22092807 (Version 4)
Quarter: 2023Q1

REPORT INFORMATION
  Report Type: Spontaneous
  Country: JP (occurrence: JP)
  Receive Date: 20230314
  Receipt Date: 20230328
  Transmission Date: 20230417
  Serious: Yes (Other)
  Sender: FDA-Public Use
  Company Number: JP-GSKNCCC-Case-01685573_AE-68235

PATIENT

DRUGS (25)
  1. NUCALA [Suspect]
     Active Substance: MEPOLIZUMAB
     Indication: Eosinophilic granulomatosis with polyangiitis
     Dosage: 300 MG
     Route: 058
     Dates: start: 20230107, end: 20230107
  2. NUCALA [Suspect]
     Active Substance: MEPOLIZUMAB
     Dosage: 300 MG
     Route: 058
     Dates: start: 20230204, end: 20230204
  3. NUCALA [Suspect]
     Active Substance: MEPOLIZUMAB
     Dosage: 300 MG
     Route: 058
     Dates: start: 20230306, end: 20230306
  4. LANDSEN TABLETS [Concomitant]
     Dosage: 1.0 MG, QD BEFORE BEDTIME
     Route: 048
  5. METHYLCOBALAMIN [Concomitant]
     Active Substance: METHYLCOBALAMIN
     Dosage: 500 UG, TID AFTER EACH MEAL
     Route: 048
  6. JUVELA N CAPSULE [Concomitant]
     Dosage: 200 MG, QD AFTER BREAKFAST
     Route: 048
  7. ALFAROL [Concomitant]
     Active Substance: ALFACALCIDOL
     Dosage: 0.5 UG, QD AFTER BREAKFAST
     Route: 048
  8. THEODUR TABLETS [Concomitant]
     Dosage: 200 MG, BID AFTER BREAKFAST AND DINNER
     Route: 048
  9. VONOPRAZAN FUMARATE [Concomitant]
     Active Substance: VONOPRAZAN FUMARATE
     Dosage: 10 MG, QD AFTER BREAKFAST
     Route: 048
  10. CINAL COMBINATION GRANULES [Concomitant]
     Dosage: 2 G, BID AFTER BREAKFAST AND DINNER
     Route: 048
  11. TRANSAMIN CAPSULES [Concomitant]
     Dosage: 250 MG, BID AFTER BREAKFAST AND DINNER
     Route: 048
  12. VALSARTAN [Concomitant]
     Active Substance: VALSARTAN
     Dosage: 40 MG, QD AFTER BEAKFAST
     Route: 048
  13. CALONAL [Concomitant]
     Active Substance: ACETAMINOPHEN
     Dosage: 400 MG, BID AFTER BREAKFAST AND DINNER
     Route: 048
  14. CYMBALTA [Concomitant]
     Active Substance: DULOXETINE HYDROCHLORIDE
     Dosage: 20 MG, TID AFTER EACH MEAL
     Route: 048
  15. PREDONINE [Concomitant]
     Active Substance: PREDNISOLONE
     Dosage: 5 MG, QD AFTER BREAKFAST
  16. PREDNISOLONE [Concomitant]
     Active Substance: PREDNISOLONE
     Dosage: 1 MG, QD AFTER BREAKFAST
     Route: 048
  17. BIOFERMIN TABLETS (BIFIDOBACTERIUM BIFIDUM) [Concomitant]
     Dosage: 1 DF, TID AFTER EACH MEAL
     Route: 048
  18. ROZEREM [Concomitant]
     Active Substance: RAMELTEON
     Dosage: 8 MG, QD BEFORE BEDTIME
  19. DAYVIGO [Concomitant]
     Active Substance: LEMBOREXANT
     Dosage: 5 MG, QD BEFORE BEDTIME
     Route: 048
  20. ONETRAM TABLETS [Concomitant]
     Dosage: 200 MG, BID AFTER BREAKFAST AND DINNER
     Route: 048
  21. TOCOPHEROL ACETATE [Concomitant]
     Active Substance: .ALPHA.-TOCOPHEROL ACETATE
     Dosage: 200 MG
  22. ACTONEL [Concomitant]
     Active Substance: RISEDRONATE SODIUM
     Dosage: 17.5 MG
  23. TRAVATANZ OPHTHALMIC SOLUTION [Concomitant]
     Dosage: UNK
  24. DIQUAS OPHTHALMIC SOLUTION [Concomitant]
     Dosage: UNK
  25. MEPTIN SWINGHALER INHALATION [Concomitant]
     Dosage: 10 UNK
     Route: 055

REACTIONS (3)
  - Malaise [Recovered/Resolved]
  - Immobile [Recovered/Resolved]
  - Back pain [Recovered/Resolved]

NARRATIVE: CASE EVENT DATE: 20230107
